FAERS Safety Report 4379465-X (Version None)
Quarter: 2004Q2

REPORT INFORMATION
  Report Type: 
  Country: None (occurrence: None)
  Receive Date: 20040617
  Receipt Date: 20040610
  Transmission Date: 20050107
  Serious: Yes (Life-Threatening, Hospitalization)
  Sender: FDA-Public Use
  Company Number: US-AMGEN-US079777

PATIENT
  Sex: Female
  Weight: 90.2 kg

DRUGS (10)
  1. ARANESP [Suspect]
     Indication: ANAEMIA OF MALIGNANT DISEASE
     Route: 058
     Dates: start: 20040518
  2. COMPAZINE [Concomitant]
  3. IBUPROFEN [Concomitant]
  4. NEXIUM [Concomitant]
  5. CORRECTOL [Concomitant]
  6. ATIVAN [Concomitant]
  7. MS CONTIN [Concomitant]
  8. OXYCODONE [Concomitant]
  9. DOCETAXEL [Concomitant]
  10. CARBOPLATIN [Concomitant]

REACTIONS (3)
  - CEREBROVASCULAR ACCIDENT [None]
  - HAEMOGLOBIN DECREASED [None]
  - HEADACHE [None]
